FAERS Safety Report 17891496 (Version 1)
Quarter: 2020Q2

REPORT INFORMATION
  Report Type: Spontaneous
  Country: US (occurrence: US)
  Receive Date: 20200612
  Receipt Date: 20200612
  Transmission Date: 20200714
  Serious: Yes (Other)
  Sender: FDA-Public Use
  Company Number: US-PROCTER_AND_GAMBLE-GS20069884

PATIENT
  Age: 81 Year
  Sex: Female

DRUGS (1)
  1. CREST GUM DETOXIFY [Suspect]
     Active Substance: STANNOUS FLUORIDE
     Dosage: UNK
     Route: 002
     Dates: end: 20200305

REACTIONS (6)
  - Blindness [Unknown]
  - Eye disorder [Unknown]
  - Oral candidiasis [Unknown]
  - Oral mucosal blistering [Unknown]
  - Eye inflammation [Unknown]
  - Noninfective gingivitis [Unknown]

NARRATIVE: CASE EVENT DATE: 2020
